APPROVED DRUG PRODUCT: FULVESTRANT
Active Ingredient: FULVESTRANT
Strength: 250MG/5ML (50MG/ML)
Dosage Form/Route: SOLUTION;INTRAMUSCULAR
Application: A209714 | Product #001 | TE Code: AO
Applicant: HBT LABS INC
Approved: Nov 21, 2019 | RLD: No | RS: No | Type: RX